FAERS Safety Report 9125334 (Version 1)
Quarter: 2013Q1

REPORT INFORMATION
  Report Type: Spontaneous
  Country: US (occurrence: US)
  Receive Date: 20130227
  Receipt Date: 20130227
  Transmission Date: 20140127
  Serious: Yes (Hospitalization)
  Sender: FDA-Public Use
  Company Number: US-GLAXOSMITHKLINE-A0833957A

PATIENT
  Age: 51 Year
  Sex: Female

DRUGS (11)
  1. AVANDIA [Suspect]
     Indication: TYPE 2 DIABETES MELLITUS
     Dosage: 4MG PER DAY
     Route: 048
     Dates: start: 20030620, end: 20060223
  2. NORVASC [Concomitant]
  3. LASIX [Concomitant]
  4. HUMULIN [Concomitant]
  5. ELAVIL [Concomitant]
  6. TAGAMET [Concomitant]
  7. NORVASC [Concomitant]
  8. HYZAAR [Concomitant]
  9. ZOCOR [Concomitant]
  10. CELEBREX [Concomitant]
  11. TIAZAC [Concomitant]

REACTIONS (2)
  - Myocardial infarction [Not Recovered/Not Resolved]
  - Cardiac failure congestive [Unknown]
